FAERS Safety Report 4860153-8 (Version None)
Quarter: 2005Q4

REPORT INFORMATION
  Report Type: 
  Country: None (occurrence: None)
  Receive Date: 20051219
  Receipt Date: 20050921
  Transmission Date: 20060501
  Serious: Yes (Hospitalization)
  Sender: FDA-Public Use
  Company Number: US-MERCK-0509USA03126

PATIENT
  Age: 47 Year
  Sex: Male
  Weight: 117 kg

DRUGS (4)
  1. VIOXX [Suspect]
     Indication: JOINT STIFFNESS
     Route: 048
     Dates: start: 20010301, end: 20030909
  2. VIOXX [Suspect]
     Route: 048
     Dates: start: 20010301, end: 20030909
  3. ALEVE [Concomitant]
     Route: 065
  4. TYLENOL [Concomitant]
     Route: 065

REACTIONS (1)
  - MYOCARDIAL INFARCTION [None]
